FAERS Safety Report 21418892 (Version 2)
Quarter: 2022Q4

REPORT INFORMATION
  Report Type: Spontaneous
  Country: US (occurrence: US)
  Receive Date: 20221006
  Receipt Date: 20221206
  Transmission Date: 20230112
  Serious: No
  Sender: FDA-Public Use
  Company Number: US-GILEAD-2022-0600398

PATIENT
  Sex: Female

DRUGS (13)
  1. AMBISOME [Suspect]
     Active Substance: AMPHOTERICIN B
     Indication: Fungaemia
     Dosage: UNK
     Route: 065
  2. VEKLURY [Suspect]
     Active Substance: REMDESIVIR
     Indication: COVID-19
     Dosage: 200 MG, INITIAL DOSE
     Route: 064
  3. VEKLURY [Suspect]
     Active Substance: REMDESIVIR
     Dosage: 100 MG, FOLLOWED BY DOSE ONCE DAILY
     Route: 064
  4. DEXAMETHASONE [Concomitant]
     Active Substance: DEXAMETHASONE
     Dosage: 6 MG, QD
     Route: 064
  5. NOREPINEPHRINE [Concomitant]
     Active Substance: NOREPINEPHRINE
     Route: 064
  6. EPOPROSTENOL [Concomitant]
     Active Substance: EPOPROSTENOL
     Route: 064
  7. VASOPRESSIN [Concomitant]
     Active Substance: VASOPRESSIN
     Route: 064
  8. METHYLPREDNISOLONE [Concomitant]
     Active Substance: METHYLPREDNISOLONE
     Route: 064
  9. HEPARIN [Concomitant]
     Active Substance: HEPARIN SODIUM
     Route: 064
  10. LINEZOLID [Concomitant]
     Active Substance: LINEZOLID
  11. CEFEPIME [Concomitant]
     Active Substance: CEFEPIME HYDROCHLORIDE
  12. ACYCLOVIR [Concomitant]
     Active Substance: ACYCLOVIR
  13. EPINEPHRINE [Concomitant]
     Active Substance: EPINEPHRINE

REACTIONS (3)
  - Premature baby [Unknown]
  - Off label use [Unknown]
  - Foetal exposure during pregnancy [Recovered/Resolved]
